FAERS Safety Report 8217588-5 (Version None)
Quarter: 2012Q1

REPORT INFORMATION
  Report Type: 
  Country: None (occurrence: None)
  Receive Date: 20120314
  Receipt Date: 20120228
  Transmission Date: 20120608
  Serious: Yes (Other)
  Sender: FDA-Public Use
  Company Number: 2011P1013287

PATIENT
  Age: 72 Year
  Sex: Female

DRUGS (6)
  1. VELCADE [Suspect]
     Dosage: 2.2 MG/M2 1.7MG/M2 1.2MG/M2 0.7MG/M2
     Route: 042
     Dates: start: 20110811, end: 20110818
  2. VELCADE [Suspect]
     Dosage: 2.2 MG/M2 1.7MG/M2 1.2MG/M2 0.7MG/M2
     Route: 042
     Dates: end: 20110919
  3. VELCADE [Suspect]
     Dosage: 2.2 MG/M2 1.7MG/M2 1.2MG/M2 0.7MG/M2
     Route: 042
     Dates: start: 20110606, end: 20110808
  4. VELCADE [Suspect]
     Dosage: 2.2 MG/M2 1.7MG/M2 1.2MG/M2 0.7MG/M2
     Route: 042
     Dates: start: 20110912
  5. FENTANYL-75 [Suspect]
     Dosage: 1 PATCH ; TDER
     Route: 062
     Dates: start: 20110919
  6. FENTANYL-50 [Suspect]
     Dosage: 1 PATCH; TDER
     Route: 062

REACTIONS (7)
  - FALL [None]
  - DIZZINESS [None]
  - DRUG INEFFECTIVE [None]
  - NEUROPATHY PERIPHERAL [None]
  - VISUAL IMPAIRMENT [None]
  - AUTONOMIC NEUROPATHY [None]
  - PAIN IN EXTREMITY [None]
